FAERS Safety Report 15626180 (Version 1)
Quarter: 2018Q4

REPORT INFORMATION
  Report Type: Spontaneous
  Country: US (occurrence: US)
  Receive Date: 20181112
  Receipt Date: 20181112
  Transmission Date: 20190205
  Serious: No
  Sender: FDA-Public Use
  Company Number: None

PATIENT
  Age: 48 Year
  Sex: Female

DRUGS (1)
  1. COPAXONE [Suspect]
     Active Substance: GLATIRAMER ACETATE
     Indication: MULTIPLE SCLEROSIS
     Dosage: ?          OTHER FREQUENCY:OTHER;?
     Route: 058
     Dates: start: 201705

REACTIONS (7)
  - Product dose omission [None]
  - Sciatic nerve neuropathy [None]
  - Joint swelling [None]
  - Musculoskeletal stiffness [None]
  - Injection site pain [None]
  - Feeling abnormal [None]
  - Injection site bruising [None]

NARRATIVE: CASE EVENT DATE: 20181109
